FAERS Safety Report 4526051-4 (Version None)
Quarter: 2004Q4

REPORT INFORMATION
  Report Type: 
  Country: None (occurrence: None)
  Receive Date: 20041129
  Receipt Date: 20040809
  Transmission Date: 20050328
  Serious: Yes (Hospitalization)
  Sender: FDA-Public Use
  Company Number: USA040875041

PATIENT
  Age: 50 Year
  Sex: Male
  Weight: 89 kg

DRUGS (1)
  1. ZYPREXA [Suspect]
     Indication: SCHIZOPHRENIA
     Dosage: 20 MG AT BEDTIME
     Dates: start: 19961114

REACTIONS (7)
  - ANKLE FRACTURE [None]
  - BELLIGERENCE [None]
  - DIFFICULTY IN WALKING [None]
  - FALL [None]
  - HALLUCINATION, AUDITORY [None]
  - WEIGHT INCREASED [None]
  - WOUND [None]
